FAERS Safety Report 8473492-9 (Version None)
Quarter: 2012Q2

REPORT INFORMATION
  Report Type: 
  Country: None (occurrence: None)
  Receive Date: 20120625
  Receipt Date: 20120625
  Transmission Date: 20120825
  Serious: Yes (Life-Threatening)
  Sender: FDA-Public Use
  Company Number: None

PATIENT
  Age: 53 Year
  Sex: Male
  Weight: 70.3075 kg

DRUGS (2)
  1. AMITRIPTYLINE HCL [Suspect]
     Indication: MIGRAINE PROPHYLAXIS
     Dosage: 1 TABLET QAM PO
     Route: 048
     Dates: start: 20120519, end: 20120527
  2. METHOTREXATE [Suspect]
     Indication: PSORIATIC ARTHROPATHY
     Dosage: 5 TABLETS EVERY WEEK PO
     Route: 048
     Dates: start: 20120515, end: 20120622

REACTIONS (2)
  - HEART RATE INCREASED [None]
  - PANIC ATTACK [None]
